FAERS Safety Report 9314703 (Version 1)
Quarter: 2013Q2

REPORT INFORMATION
  Report Type: Spontaneous
  Country: IE (occurrence: IE)
  Receive Date: 20130529
  Receipt Date: 20130529
  Transmission Date: 20140414
  Serious: Yes (Other)
  Sender: FDA-Public Use
  Company Number: IE-ROCHE-1228129

PATIENT
  Sex: Male

DRUGS (1)
  1. LARIAM [Suspect]
     Indication: PRODUCT USED FOR UNKNOWN INDICATION
     Route: 065

REACTIONS (8)
  - Oesophageal spasm [Unknown]
  - Chest pain [Unknown]
  - Sexual dysfunction [Unknown]
  - Nightmare [Unknown]
  - Neck pain [Unknown]
  - Back pain [Unknown]
  - Local swelling [Unknown]
  - Muscular weakness [Unknown]
